APPROVED DRUG PRODUCT: ALLEGRA-D 24 HOUR ALLERGY AND CONGESTION
Active Ingredient: FEXOFENADINE HYDROCHLORIDE; PSEUDOEPHEDRINE HYDROCHLORIDE
Strength: 180MG;240MG
Dosage Form/Route: TABLET, EXTENDED RELEASE;ORAL
Application: N021704 | Product #002
Applicant: CHATTEM INC DBA SANOFI CONSUMER HEALTHCARE
Approved: Jan 24, 2011 | RLD: Yes | RS: Yes | Type: OTC